FAERS Safety Report 15968796 (Version 7)
Quarter: 2019Q2

REPORT INFORMATION
  Report Type: Spontaneous
  Country: US (occurrence: US)
  Receive Date: 20190215
  Receipt Date: 20190619
  Transmission Date: 20190711
  Serious: Yes (Other)
  Sender: FDA-Public Use
  Company Number: US-PFIZER INC-2019067426

PATIENT
  Age: 70 Year
  Sex: Female
  Weight: 118 kg

DRUGS (8)
  1. METOPROLOL. [Concomitant]
     Active Substance: METOPROLOL
     Indication: TACHYCARDIA
     Dosage: 25 MG, 2X/DAY
     Route: 048
  2. LYRICA [Concomitant]
     Active Substance: PREGABALIN
     Indication: NEURALGIA
     Dosage: 75 MG, 3X/DAY
     Route: 048
  3. LOSARTAN AND HYDROCHLOROTHIAZIDE [Concomitant]
     Active Substance: HYDROCHLOROTHIAZIDE\LOSARTAN POTASSIUM
     Indication: BLOOD PRESSURE ABNORMAL
     Dosage: 100 MG, 1X/DAY
  4. METHOTREXATE. [Concomitant]
     Active Substance: METHOTREXATE
     Indication: RHEUMATOID ARTHRITIS
     Dosage: 10 IU, WEEKLY (10 UNITS, INJECTION, ONCE WEEKLY)
  5. XELJANZ XR [Suspect]
     Active Substance: TOFACITINIB CITRATE
     Indication: RHEUMATOID ARTHRITIS
     Dosage: 11 MG, 1X/DAY
     Route: 048
     Dates: end: 201905
  6. BACLOFEN. [Concomitant]
     Active Substance: BACLOFEN
     Indication: MUSCLE RELAXANT THERAPY
     Dosage: 10 MG, 3X/DAY
  7. LOSARTAN AND HYDROCHLOROTHIAZIDE [Concomitant]
     Active Substance: HYDROCHLOROTHIAZIDE\LOSARTAN POTASSIUM
     Indication: POLYURIA
  8. XELJANZ XR [Suspect]
     Active Substance: TOFACITINIB CITRATE
     Indication: PSORIATIC ARTHROPATHY
     Dosage: 11 MG, 1X/DAY
     Route: 048
     Dates: start: 20190101, end: 20190606

REACTIONS (16)
  - Intervertebral disc protrusion [Unknown]
  - Feeling abnormal [Unknown]
  - Myalgia [Unknown]
  - Temporomandibular joint syndrome [Unknown]
  - Fatigue [Unknown]
  - Drug ineffective [Unknown]
  - Back disorder [Unknown]
  - Limb discomfort [Unknown]
  - Asthenia [Unknown]
  - Gait disturbance [Unknown]
  - Vomiting [Unknown]
  - Blood cholesterol increased [Unknown]
  - Arthralgia [Unknown]
  - Cold sweat [Unknown]
  - Osteoarthritis [Unknown]
  - Infection [Unknown]

NARRATIVE: CASE EVENT DATE: 201903
